FAERS Safety Report 9508195 (Version 1)
Quarter: 2013Q1

REPORT INFORMATION
  Report Type: Spontaneous
  Country: US (occurrence: None)
  Receive Date: 20130305
  Receipt Date: 20130305
  Transmission Date: 20140127
  Serious: Yes (Hospitalization, Other)
  Sender: FDA-Public Use
  Company Number: 163-21880-12021151

PATIENT
  Age: 88 Year
  Sex: Female

DRUGS (3)
  1. REVLIMID (LENALIDOMIDE) [Suspect]
     Indication: PLASMA CELL MYELOMA
     Route: 048
     Dates: start: 20110223, end: 20110728
  2. AMLODIPINE [Concomitant]
  3. WARFARIN (WARFARIN) [Concomitant]

REACTIONS (4)
  - Syncope [None]
  - Chest pain [None]
  - Vomiting [None]
  - Leukopenia [None]
